FAERS Safety Report 8176798-6 (Version None)
Quarter: 2012Q1

REPORT INFORMATION
  Report Type: 
  Country: None (occurrence: None)
  Receive Date: 20120301
  Receipt Date: 20120224
  Transmission Date: 20120608
  Serious: Yes (Other)
  Sender: FDA-Public Use
  Company Number: US-AMGEN-USASP2011037286

PATIENT
  Age: 52 Year
  Sex: Female

DRUGS (6)
  1. RAPTIVA [Concomitant]
     Dosage: UNK
     Dates: end: 20090218
  2. ENBREL [Suspect]
     Indication: PSORIATIC ARTHROPATHY
     Dosage: 50 MG, 2 TIMES/WK
     Dates: start: 20050429
  3. NEORAL [Concomitant]
     Dosage: UNK
     Dates: end: 20030530
  4. AMEVIVE [Concomitant]
     Dosage: UNK
     Dates: end: 20040505
  5. METHOTREXATE [Concomitant]
     Dosage: UNK
     Dates: end: 20091015
  6. HUMIRA [Concomitant]
     Dosage: UNK
     Dates: end: 20100218

REACTIONS (4)
  - BENIGN BREAST NEOPLASM [None]
  - ABDOMINAL HERNIA [None]
  - BREAST CANCER FEMALE [None]
  - INJECTION SITE PAIN [None]
